FAERS Safety Report 9646254 (Version 3)
Quarter: 2013Q4

REPORT INFORMATION
  Report Type: Spontaneous
  Country: JP (occurrence: JP)
  Receive Date: 20131025
  Receipt Date: 20131031
  Transmission Date: 20140711
  Serious: Yes (Hospitalization)
  Sender: FDA-Public Use
  Company Number: JP-B.I. PHARMACEUTICALS,INC./RIDGEFIELD-2013-BI-27756NB

PATIENT
  Age: 79 Year
  Sex: Male

DRUGS (8)
  1. MICOMBI COMBINATION [Suspect]
     Route: 048
     Dates: end: 20130819
  2. BAYASPIRIN / ASPIRIN [Concomitant]
     Dosage: 100 MG
     Route: 048
  3. DONEPEZIL HYDROCHLORIDE / DONEPEZIL HYDROCHLORIDE [Concomitant]
     Dosage: 5 MG
     Route: 048
  4. ISOCORONAL R / ISOSORBIDE DINITRATE [Concomitant]
     Route: 065
  5. FERROMIA / SODIUM FERROUS CITRATE [Concomitant]
     Route: 065
  6. MAGLAX [Concomitant]
     Route: 065
  7. CONIEL / BENIDIPINE HYDROCHLORIDE [Concomitant]
     Dosage: 8 MG
     Route: 048
  8. TAKEPRON / LANSOPRAZOLE [Concomitant]
     Dosage: 15 MG
     Route: 048

REACTIONS (2)
  - Cerebral infarction [Unknown]
  - Photosensitivity reaction [Not Recovered/Not Resolved]
